FAERS Safety Report 10373742 (Version 1)
Quarter: 2014Q1

REPORT INFORMATION
  Report Type: Spontaneous
  Country: US (occurrence: None)
  Receive Date: 20140306
  Receipt Date: 20140306
  Transmission Date: 20141002
  Serious: Yes (Disabling)
  Sender: FDA-Public Use
  Company Number: 163-21880-13051739

PATIENT
  Age: 58 Year
  Sex: Male

DRUGS (39)
  1. REVLIMID (LENALIDOMIDE) (25 MILLIGRAM, CAPSULES) [Suspect]
     Indication: PLASMA CELL MYELOMA
     Dosage: 14 IN 14 D
     Route: 048
     Dates: start: 20120910, end: 20130107
  2. ACYCLOVIR [Concomitant]
  3. ADVIL (IBUPROFEN) [Concomitant]
  4. ATENOLOL [Concomitant]
  5. BACTRIM DS [Concomitant]
  6. CYMBALTA [Concomitant]
  7. DEXAMETHASONE [Concomitant]
  8. DIFLUCAN (FLUCONAZOLE) [Concomitant]
  9. DULCOLAX (BISACODYL) [Concomitant]
  10. DURAGESIC (FENTANYL) [Concomitant]
  11. ENEMA (OTHER THERAPEUTIC PRODUCTS) [Concomitant]
  12. FERROUS SULFATE [Concomitant]
  13. FOLBIC (HEPAGRISEVIT FORTE-N TABLET) [Concomitant]
  14. GLUCOSAMINE [Concomitant]
  15. LORAZEPAM [Concomitant]
  16. MAGNESIUM CITRATE [Concomitant]
  17. MARINOL (DRONABINOL) [Concomitant]
  18. METHADONE HCL [Concomitant]
  19. MILK OF MAGNESIA (MAGNESIUM HYDROXIDE) [Concomitant]
  20. ONDANSETRON [Concomitant]
  21. PERCOCET (OXYCOCET) [Concomitant]
  22. POTASSIUM CHLORIDE [Concomitant]
  23. PROCHLORPERAZINE MALEATE [Concomitant]
  24. RANITIDINE HCL [Concomitant]
  25. SENOKOT (SENNA FRUIT) [Concomitant]
  26. SMZ-TMP DS (BACTRIM) [Concomitant]
  27. TRAMADOL HCL [Concomitant]
  28. VALTREX (VALACICLOVIR HYDROCHLORIDE) [Concomitant]
  29. VYTORIN (INEGY) [Concomitant]
  30. BORTEZOMIB [Concomitant]
  31. DEXAMETHASONE SODIUM PHOSPHATE [Concomitant]
  32. GRANISETRON HCL [Concomitant]
  33. SODIUM CHLORIDE [Concomitant]
  34. ZOLEDRONIC ACID [Concomitant]
  35. ENDOCET (OXYCOCET) [Concomitant]
  36. OXYCODONE-ACETAMINOPHEN (OXYCOCET) [Concomitant]
  37. OXYCONTIN (OXYCODONE HYDROCHLORIDE) [Concomitant]
  38. PHENERGAN (PROMETHAZINE HYDROCHLORIDE) [Concomitant]
  39. ZOFRAN (ONDANSETRON HYDROCHLORIDE) [Concomitant]

REACTIONS (1)
  - Neuropathy peripheral [None]
